FAERS Safety Report 18413788 (Version 2)
Quarter: 2020Q4

REPORT INFORMATION
  Report Type: Spontaneous
  Country: US (occurrence: US)
  Receive Date: 20201022
  Receipt Date: 20201117
  Transmission Date: 20210114
  Serious: Yes (Other)
  Sender: FDA-Public Use
  Company Number: US-ADVANZ PHARMA-202010009455

PATIENT

DRUGS (4)
  1. PREDNISOLONE. [Suspect]
     Active Substance: PREDNISOLONE
     Indication: CORNEAL DEGENERATION
     Dosage: UNK, 4 HOUR
     Route: 061
  2. PREDNISOLONE. [Suspect]
     Active Substance: PREDNISOLONE
     Dosage: SLOW TAPER
     Route: 061
  3. PREDNISOLONE. [Suspect]
     Active Substance: PREDNISOLONE
     Dosage: UNK, 3 HOURS
     Route: 061
  4. PREDNISOLONE. [Suspect]
     Active Substance: PREDNISOLONE
     Dosage: UNK, 6 HOUR
     Route: 061

REACTIONS (2)
  - Cytomegalovirus infection [Recovered/Resolved]
  - Corneal endotheliitis [Recovered/Resolved]
